FAERS Safety Report 22159969 (Version 1)
Quarter: 2023Q1

REPORT INFORMATION
  Report Type: Spontaneous
  Country: US (occurrence: None)
  Receive Date: 20230330
  Receipt Date: 20230330
  Transmission Date: 20230417
  Serious: No
  Sender: FDA-Public Use
  Company Number: None

PATIENT
  Age: 60 Year
  Sex: Female
  Weight: 60.75 kg

DRUGS (7)
  1. PANZYGA [Suspect]
     Active Substance: HUMAN IMMUNOGLOBULIN G
     Indication: Immunodeficiency
     Dosage: 25 G GRAM(S)
     Route: 042
  2. PANZYGA [Suspect]
     Active Substance: HUMAN IMMUNOGLOBULIN G
     Indication: Immunodeficiency
     Dosage: 25 G GRAM (S)?INTRAVENOUS
     Route: 042
  3. SOLU-CORTEF [Suspect]
     Active Substance: HYDROCORTISONE SODIUM SUCCINATE
  4. DIPHENHYDRAMINE [Suspect]
     Active Substance: DIPHENHYDRAMINE
  5. ONDANSETRON [Concomitant]
     Active Substance: ONDANSETRON
  6. LIDOCAINE 2.5% [Concomitant]
  7. ACETAMINOPHEN [Concomitant]
     Active Substance: ACETAMINOPHEN

REACTIONS (3)
  - Nausea [None]
  - Vomiting [None]
  - Infusion related reaction [None]

NARRATIVE: CASE EVENT DATE: 20230315
